FAERS Safety Report 15854487 (Version 1)
Quarter: 2019Q1

REPORT INFORMATION
  Report Type: Spontaneous
  Country: US (occurrence: US)
  Receive Date: 20190122
  Receipt Date: 20190122
  Transmission Date: 20190417
  Serious: Yes (Disabling)
  Sender: FDA-Public Use
  Company Number: None

PATIENT
  Age: 80 Year
  Sex: Female
  Weight: 36.9 kg

DRUGS (1)
  1. ARIKAYCE [Suspect]
     Active Substance: AMIKACIN
     Indication: BRONCHIOLITIS
     Route: 055
     Dates: start: 20190117, end: 20190120

REACTIONS (2)
  - Poverty of speech [None]
  - Dysphonia [None]

NARRATIVE: CASE EVENT DATE: 20190118
